FAERS Safety Report 9075017 (Version 1)
Quarter: 2013Q1

REPORT INFORMATION
  Report Type: Report from Study
  Country: US (occurrence: US)
  Receive Date: 20130131
  Receipt Date: 20130131
  Transmission Date: 20140127
  Serious: No
  Sender: FDA-Public Use
  Company Number: US-ABBOTT-12P-163-1005525-00

PATIENT
  Age: 69 Year
  Sex: Female

DRUGS (17)
  1. HUMIRA [Suspect]
     Indication: CROHN^S DISEASE
     Dates: start: 20121001, end: 20121001
  2. HUMIRA [Suspect]
     Dates: start: 20121015, end: 20121015
  3. HUMIRA [Suspect]
     Dates: start: 20121029
  4. OMEPRAZOLE [Concomitant]
     Indication: PRODUCT USED FOR UNKNOWN INDICATION
     Dosage: 1 TABLET DAILY
  5. MOBIC [Concomitant]
     Indication: PRODUCT USED FOR UNKNOWN INDICATION
     Dosage: 1 TABLET DAILY
  6. NORVASC [Concomitant]
     Indication: HYPERTENSION
     Dosage: 1 TABLET DAILY
  7. LIALDA [Concomitant]
     Indication: CROHN^S DISEASE
     Dosage: 4 TABLET DAILY
  8. ENTOCORT [Concomitant]
     Indication: PRODUCT USED FOR UNKNOWN INDICATION
     Dosage: 3 TABLET DAILY
  9. CALTRATE 600 + D 400 IU [Concomitant]
     Indication: PRODUCT USED FOR UNKNOWN INDICATION
  10. GLUCOSAMINE [Concomitant]
     Indication: PRODUCT USED FOR UNKNOWN INDICATION
  11. CARDIOTEC [Concomitant]
     Indication: PRODUCT USED FOR UNKNOWN INDICATION
     Dosage: 1 CAPSULE IN MORING, 1 AT LUNCH
  12. CARIDO TABS [Concomitant]
     Indication: PRODUCT USED FOR UNKNOWN INDICATION
     Dosage: 1 TABLET DAILY
  13. VITAMIN D3 [Concomitant]
     Indication: VITAMIN D DEFICIENCY
     Dosage: 2 TABLETS DAILY
  14. MACUTAB [Concomitant]
     Indication: MACULAR DEGENERATION
     Dosage: 2 TABS IN MORNING, 2 TABS AT LUNCH
  15. PANTOTHENIC ACID [Concomitant]
     Indication: PRODUCT USED FOR UNKNOWN INDICATION
  16. ACETAMINOPHEN PM [Concomitant]
     Indication: MUSCLE SPASMS
     Dosage: 2 TABLETS AT NIGHT
  17. ACETAMINOPHEN PM [Concomitant]
     Indication: BACK PAIN

REACTIONS (9)
  - Serum ferritin decreased [Recovering/Resolving]
  - Rhinorrhoea [Not Recovered/Not Resolved]
  - Pollakiuria [Not Recovered/Not Resolved]
  - Pollakiuria [Not Recovered/Not Resolved]
  - Micturition urgency [Not Recovered/Not Resolved]
  - Sensation of heaviness [Not Recovered/Not Resolved]
  - Back pain [Not Recovered/Not Resolved]
  - Injection site haemorrhage [Not Recovered/Not Resolved]
  - Urinary tract infection [Not Recovered/Not Resolved]
